APPROVED DRUG PRODUCT: MYCELEX-7
Active Ingredient: CLOTRIMAZOLE
Strength: 1%
Dosage Form/Route: CREAM;VAGINAL
Application: N018230 | Product #002
Applicant: BAYER HEALTHCARE LLC
Approved: Dec 26, 1991 | RLD: No | RS: No | Type: DISCN